FAERS Safety Report 6150866-2 (Version None)
Quarter: 2009Q2

REPORT INFORMATION
  Report Type: 
  Country: None (occurrence: None)
  Receive Date: 20090408
  Receipt Date: 20090304
  Transmission Date: 20091009
  Serious: No
  Sender: FDA-Public Use
  Company Number: 8043738

PATIENT
  Age: 31 Year
  Sex: Male
  Weight: 79.5 kg

DRUGS (2)
  1. KEPPRA [Suspect]
     Indication: CONVULSION
     Dosage: 500 MG/D PO
     Route: 048
     Dates: start: 20090304
  2. KEPPRA [Suspect]
     Indication: CONVULSION
     Dosage: 1000 MG /D PO
     Route: 048
     Dates: start: 20090304

REACTIONS (1)
  - UNEVALUABLE EVENT [None]
